FAERS Safety Report 20334177 (Version 4)
Quarter: 2022Q1

REPORT INFORMATION
  Report Type: Spontaneous
  Country: US (occurrence: US)
  Receive Date: 20220113
  Receipt Date: 20220315
  Transmission Date: 20220423
  Serious: Yes (Hospitalization)
  Sender: FDA-Public Use
  Company Number: US-BIOGENIDEC-2014BI095051

PATIENT
  Sex: Female

DRUGS (6)
  1. TYSABRI [Suspect]
     Active Substance: NATALIZUMAB
     Indication: Multiple sclerosis
     Route: 042
     Dates: start: 20061108, end: 20061108
  2. TYSABRI [Suspect]
     Active Substance: NATALIZUMAB
     Route: 042
     Dates: start: 20130125
  3. TYSABRI [Suspect]
     Active Substance: NATALIZUMAB
     Route: 065
     Dates: start: 20130125, end: 20150423
  4. TYSABRI [Suspect]
     Active Substance: NATALIZUMAB
     Route: 065
     Dates: start: 20061108, end: 20070105
  5. TYSABRI [Suspect]
     Active Substance: NATALIZUMAB
     Route: 065
     Dates: start: 20031120, end: 20050601
  6. TYSABRI [Suspect]
     Active Substance: NATALIZUMAB
     Route: 065
     Dates: end: 201506

REACTIONS (16)
  - Multiple sclerosis relapse [Unknown]
  - Gait disturbance [Unknown]
  - Arthropathy [Unknown]
  - Speech disorder [Unknown]
  - Circadian rhythm sleep disorder [Unknown]
  - Eye disorder [Unknown]
  - Migraine [Unknown]
  - Stress [Unknown]
  - Coordination abnormal [Unknown]
  - Drug ineffective [Unknown]
  - Uveitis [Not Recovered/Not Resolved]
  - Drug intolerance [Unknown]
  - Visual impairment [Not Recovered/Not Resolved]
  - Tremor [Unknown]
  - Depressed mood [Unknown]
  - Headache [Unknown]

NARRATIVE: CASE EVENT DATE: 20150101
